FAERS Safety Report 17321294 (Version 2)
Quarter: 2020Q1

REPORT INFORMATION
  Report Type: Spontaneous
  Country: US (occurrence: US)
  Receive Date: 20200126
  Receipt Date: 20200325
  Transmission Date: 20200409
  Serious: Yes (Hospitalization, Other)
  Sender: FDA-Public Use
  Company Number: US-ACORDA-ACO_158588_2019

PATIENT
  Sex: Female
  Weight: 72.56 kg

DRUGS (7)
  1. TECFIDERA [Suspect]
     Active Substance: DIMETHYL FUMARATE
     Dosage: 240 MILLIGRAM, BID
     Route: 048
  2. AMPYRA [Suspect]
     Active Substance: DALFAMPRIDINE
     Indication: MULTIPLE SCLEROSIS
  3. TECFIDERA [Suspect]
     Active Substance: DIMETHYL FUMARATE
     Dosage: 240 MILLIGRAM, BID
     Route: 048
     Dates: start: 20140724
  4. TECFIDERA [Suspect]
     Active Substance: DIMETHYL FUMARATE
     Indication: MULTIPLE SCLEROSIS
     Dosage: 120 MILLIGRAM, BID
     Route: 048
  5. OMEPRAZOLE. [Concomitant]
     Active Substance: OMEPRAZOLE
     Indication: GASTRIC ULCER
     Dosage: UNK
     Route: 065
  6. AMPYRA [Suspect]
     Active Substance: DALFAMPRIDINE
     Indication: GAIT DISTURBANCE
     Dosage: 10 MILLIGRAM, BID
     Route: 048
     Dates: start: 2010
  7. TECFIDERA [Suspect]
     Active Substance: DIMETHYL FUMARATE
     Dosage: 240 MILLIGRAM, BID
     Route: 048
     Dates: start: 20150227

REACTIONS (19)
  - Musculoskeletal stiffness [Recovering/Resolving]
  - Bedridden [Recovering/Resolving]
  - Syncope [Recovering/Resolving]
  - Fall [Recovering/Resolving]
  - CSF volume increased [Recovering/Resolving]
  - Fall [Recovered/Resolved]
  - Gait inability [Recovered/Resolved]
  - Confusional state [Recovering/Resolving]
  - Fall [Recovered/Resolved]
  - Gastric ulcer [Recovering/Resolving]
  - Condition aggravated [Recovered/Resolved]
  - Urinary tract infection [Unknown]
  - Memory impairment [Recovering/Resolving]
  - Cognitive disorder [Unknown]
  - Gait disturbance [Recovered/Resolved]
  - Spinal cord compression [Recovered/Resolved]
  - Aphasia [Unknown]
  - Therapy cessation [Unknown]
  - Gait inability [Recovered/Resolved]

NARRATIVE: CASE EVENT DATE: 2018
